FAERS Safety Report 25424930 (Version 1)
Quarter: 2025Q2

REPORT INFORMATION
  Report Type: Spontaneous
  Country: US (occurrence: US)
  Receive Date: 20250611
  Receipt Date: 20250611
  Transmission Date: 20250717
  Serious: No
  Sender: TAKEDA
  Company Number: US-TAKEDA-2025TUS053298

PATIENT
  Age: 16 Year
  Sex: Male

DRUGS (1)
  1. EOHILIA [Suspect]
     Active Substance: BUDESONIDE
     Indication: Eosinophilic oesophagitis
     Dosage: 10 MILLILITER, QD
     Dates: start: 20250102

REACTIONS (2)
  - No adverse event [Unknown]
  - Product use issue [Unknown]
